FAERS Safety Report 19546623 (Version 2)
Quarter: 2021Q4

REPORT INFORMATION
  Report Type: Spontaneous
  Country: JP (occurrence: JP)
  Receive Date: 20210715
  Receipt Date: 20211021
  Transmission Date: 20220303
  Serious: Yes (Death, Hospitalization, Other)
  Sender: FDA-Public Use
  Company Number: JP-MTPC-MTPC2021-0016922

PATIENT
  Age: 8 Decade
  Sex: Male

DRUGS (3)
  1. REMICADE [Suspect]
     Active Substance: INFLIXIMAB
     Indication: Small intestinal ulcer haemorrhage
     Route: 042
  2. REBAMIPIDE [Concomitant]
     Active Substance: REBAMIPIDE
     Indication: Small intestinal ulcer haemorrhage
     Route: 048
  3. COLCHICINE [Concomitant]
     Active Substance: COLCHICINE
     Indication: Small intestinal ulcer haemorrhage
     Route: 048

REACTIONS (2)
  - Failure to anastomose [Unknown]
  - Opportunistic infection [Fatal]
